FAERS Safety Report 23952457 (Version 1)
Quarter: 2024Q2

REPORT INFORMATION
  Report Type: Spontaneous
  Country: SE (occurrence: SE)
  Receive Date: 20240607
  Receipt Date: 20240607
  Transmission Date: 20240715
  Serious: Yes (Life-Threatening, Hospitalization, Disabling)
  Sender: FDA-Public Use
  Company Number: None

PATIENT
  Age: 57 Year
  Sex: Female
  Weight: 60 kg

DRUGS (1)
  1. NAPROXEN [Suspect]
     Active Substance: NAPROXEN
     Indication: Neck pain
     Dosage: 500 MILLIGRAM, BID
     Route: 048
     Dates: start: 20230203, end: 20230211

REACTIONS (6)
  - Cerebrovascular accident [Recovering/Resolving]
  - Vitreous detachment [Recovering/Resolving]
  - Pain [Recovering/Resolving]
  - Hypertension [Not Recovered/Not Resolved]
  - Haematemesis [Recovered/Resolved]
  - Renal failure [Not Recovered/Not Resolved]

NARRATIVE: CASE EVENT DATE: 20230209
